FAERS Safety Report 10195573 (Version 2)
Quarter: 2014Q2

REPORT INFORMATION
  Report Type: Spontaneous
  Country: US (occurrence: US)
  Receive Date: 20140527
  Receipt Date: 20140527
  Transmission Date: 20141212
  Serious: Yes (Other)
  Sender: FDA-Public Use
  Company Number: PHHY2014US051377

PATIENT
  Sex: Male

DRUGS (9)
  1. LIORESAL INTRATECAL [Suspect]
     Indication: MUSCLE SPASTICITY
     Dosage: 1400 UG (APROX.)/ DAY
     Route: 037
  2. BACLOFEN [Suspect]
     Dosage: UNK UKN, UNK
     Route: 048
  3. GABAPENTIN [Suspect]
     Dosage: UNK UKN, UNK
  4. OMEPRAZOLE [Suspect]
     Dosage: UNK UKN, UNK
  5. LEXAPRO [Suspect]
     Dosage: UNK UKN, UNK
  6. CRESTOR [Suspect]
     Dosage: UNK UKN, UNK
  7. SEROQUEL [Suspect]
     Dosage: UNK UKN, UNK
  8. FLOMAX [Suspect]
     Dosage: UNK UKN, UNK
  9. MACRODANTIN [Suspect]
     Dosage: UNK UKN, UNK

REACTIONS (2)
  - Musculoskeletal stiffness [Recovering/Resolving]
  - Drug withdrawal syndrome [Recovering/Resolving]
